FAERS Safety Report 10583059 (Version 1)
Quarter: 2014Q4

REPORT INFORMATION
  Report Type: Spontaneous
  Country: FR (occurrence: FR)
  Receive Date: 20141114
  Receipt Date: 20141114
  Transmission Date: 20150529
  Serious: Yes (Other)
  Sender: FDA-Public Use
  Company Number: FR-ROCHE-1490640

PATIENT
  Age: 47 Year
  Sex: Female

DRUGS (6)
  1. IFOSFAMIDE. [Suspect]
     Active Substance: IFOSFAMIDE
     Indication: LYMPHOMA
     Route: 042
     Dates: start: 20131212, end: 20131213
  2. UROMITEXAN [Suspect]
     Active Substance: MESNA
     Indication: LYMPHOMA
     Route: 042
     Dates: start: 20131212, end: 20131213
  3. ETOPOSIDE. [Suspect]
     Active Substance: ETOPOSIDE
     Indication: LYMPHOMA
     Route: 042
     Dates: start: 20131211, end: 20131213
  4. CARBOPLATIN. [Suspect]
     Active Substance: CARBOPLATIN
     Indication: LYMPHOMA
     Route: 042
     Dates: start: 20131212, end: 20131212
  5. MABTHERA [Suspect]
     Active Substance: RITUXIMAB
     Indication: LYMPHOMA
     Route: 042
     Dates: start: 20131211, end: 20131211
  6. ZOPHREN [Concomitant]
     Active Substance: ONDANSETRON
     Dosage: TREATMENT DURATION= 6 DAYS.
     Route: 042
     Dates: start: 20131211, end: 20131216

REACTIONS (4)
  - Confusional state [Recovered/Resolved]
  - Myoclonus [Recovered/Resolved]
  - Encephalopathy [Recovered/Resolved]
  - Clonic convulsion [Recovered/Resolved]

NARRATIVE: CASE EVENT DATE: 20131213
